FAERS Safety Report 8425169-3 (Version None)
Quarter: 2012Q2

REPORT INFORMATION
  Report Type: 
  Country: None (occurrence: None)
  Receive Date: 20120531
  Receipt Date: 20120522
  Transmission Date: 20120825
  Serious: Yes (Other)
  Sender: FDA-Public Use
  Company Number: 2012SP027427

PATIENT
  Age: 39 Year
  Sex: Male

DRUGS (3)
  1. RIBAVIRIN [Suspect]
     Indication: PRODUCT USED FOR UNKNOWN INDICATION
     Dates: start: 20120315
  2. VICTRELIS [Suspect]
     Indication: PRODUCT USED FOR UNKNOWN INDICATION
     Dates: start: 20120315
  3. PEG-INTRON [Suspect]
     Indication: CHRONIC HEPATITIS
     Dosage: 150 MCG;QW;SC
     Route: 058
     Dates: start: 20120315

REACTIONS (1)
  - CONVULSION [None]
